FAERS Safety Report 4734858-3 (Version None)
Quarter: 2005Q3

REPORT INFORMATION
  Report Type: 
  Country: None (occurrence: None)
  Receive Date: 20050803
  Receipt Date: 20050803
  Transmission Date: 20060218
  Serious: Yes (Other)
  Sender: FDA-Public Use
  Company Number: None

PATIENT
  Age: 56 Year
  Sex: Female
  Weight: 75.3 kg

DRUGS (1)
  1. FOSAMAX [Suspect]

REACTIONS (1)
  - ABDOMINAL PAIN [None]
